FAERS Safety Report 4822785-2 (Version None)
Quarter: 2005Q4

REPORT INFORMATION
  Report Type: 
  Country: None (occurrence: None)
  Receive Date: 20051104
  Receipt Date: 20051019
  Transmission Date: 20060501
  Serious: Yes (Other)
  Sender: FDA-Public Use
  Company Number: DSA_27312_2005

PATIENT
  Age: 64 Year
  Sex: Female

DRUGS (11)
  1. BI-TILDIEM [Suspect]
     Dosage: 1 TAB Q DAY PO
     Route: 048
     Dates: start: 20010101
  2. KETOPROFEN [Concomitant]
  3. COTAREG ^NOVARTIS^ [Concomitant]
  4. KARDEGIC [Concomitant]
  5. CORVASAL [Concomitant]
  6. PLAVIX [Concomitant]
  7. TAHOR [Concomitant]
  8. RANIDINE [Concomitant]
  9. SKENAN [Concomitant]
  10. STILNOX [Concomitant]
  11. DOLIPRANE [Concomitant]

REACTIONS (2)
  - IMPAIRED HEALING [None]
  - SKIN LESION [None]
